FAERS Safety Report 6627705-6 (Version None)
Quarter: 2010Q1

REPORT INFORMATION
  Report Type: 
  Country: None (occurrence: None)
  Receive Date: 20100301
  Receipt Date: 20090528
  Transmission Date: 20100710
  Serious: Yes (Hospitalization, Other)
  Sender: FDA-Public Use
  Company Number: RB-16151-2009

PATIENT
  Sex: Female

DRUGS (13)
  1. SUBUTEX [Suspect]
     Indication: DRUG DEPENDENCE
     Dosage: 8 MG QD TRANSPLACENTAL
     Route: 064
     Dates: start: 20081003, end: 20090505
  2. WELLBUTRIN XL [Suspect]
     Indication: ANXIETY
     Dosage: 150 MG BID TRANSPLACENTAL
     Route: 064
     Dates: start: 20080812, end: 20090505
  3. WELLBUTRIN XL [Suspect]
     Indication: DEPRESSION
     Dosage: 150 MG BID TRANSPLACENTAL
     Route: 064
     Dates: start: 20080812, end: 20090505
  4. REMERON [Suspect]
     Indication: ANXIETY
     Dosage: 15 MG TRANSPLACENTAL
     Route: 064
     Dates: start: 20081009, end: 20090505
  5. REMERON [Suspect]
     Indication: DEPRESSION
     Dosage: 15 MG TRANSPLACENTAL
     Route: 064
     Dates: start: 20081009, end: 20090505
  6. NICOTINE POLACRILEX [Concomitant]
  7. PHENAZOPYRIDINE HCL TAB [Concomitant]
  8. VITAMIN TAB [Concomitant]
  9. PROMETHAZINE [Concomitant]
  10. NITROFURANTOIN [Concomitant]
  11. CALCIUM [Concomitant]
  12. GLYCERIN [Concomitant]
  13. METAMUCIL-2 [Concomitant]

REACTIONS (4)
  - DRUG EXPOSURE DURING PREGNANCY [None]
  - DRUG WITHDRAWAL SYNDROME NEONATAL [None]
  - FOETAL GROWTH RETARDATION [None]
  - HERPES VIRUS INFECTION [None]
